FAERS Safety Report 4775119-6 (Version None)
Quarter: 2005Q3

REPORT INFORMATION
  Report Type: 
  Country: None (occurrence: None)
  Receive Date: 20050920
  Receipt Date: 20050907
  Transmission Date: 20060218
  Serious: Yes (Death, Other)
  Sender: FDA-Public Use
  Company Number: 2005125384

PATIENT
  Age: 45 Year
  Sex: Male

DRUGS (4)
  1. VIAGRA [Suspect]
     Indication: ERECTILE DYSFUNCTION
     Dosage: 50 MG (50 MG, AS NECESSARY), ORAL
     Route: 048
     Dates: start: 20020131, end: 20020701
  2. ZANTAC [Concomitant]
  3. VITAMINS (VITAMINS) [Concomitant]
  4. ASPIRIN [Concomitant]

REACTIONS (4)
  - ANEURYSM [None]
  - CHEST PAIN [None]
  - HYPERHIDROSIS [None]
  - WEIGHT DECREASED [None]
